FAERS Safety Report 5925559-4 (Version None)
Quarter: 2008Q4

REPORT INFORMATION
  Report Type: 
  Country: None (occurrence: None)
  Receive Date: 20081021
  Receipt Date: 20081014
  Transmission Date: 20090506
  Serious: Yes (Hospitalization)
  Sender: FDA-Public Use
  Company Number: BE-ROCHE-591167

PATIENT
  Age: 90 Year
  Sex: Female
  Weight: 40 kg

DRUGS (6)
  1. BONIVA [Suspect]
     Indication: OSTEOPOROSIS
     Route: 042
     Dates: start: 20080101, end: 20080101
  2. AMLODIPINE [Concomitant]
     Indication: HYPERTENSION
  3. DIOVAN HCT [Concomitant]
     Indication: HYPERTENSION
  4. VITAMINE D [Concomitant]
     Indication: OSTEOPOROSIS
  5. LORMETAZEPAM [Concomitant]
     Indication: SLEEP DISORDER
  6. DURAGESIC-100 [Concomitant]

REACTIONS (2)
  - CONFUSIONAL STATE [None]
  - GENERAL PHYSICAL HEALTH DETERIORATION [None]
